FAERS Safety Report 8393126-1 (Version None)
Quarter: 2012Q2

REPORT INFORMATION
  Report Type: 
  Country: None (occurrence: None)
  Receive Date: 20120529
  Receipt Date: 20120503
  Transmission Date: 20120825
  Serious: No
  Sender: FDA-Public Use
  Company Number: US-ABBOTT-12P-163-0932145-00

PATIENT
  Sex: Female
  Weight: 96.248 kg

DRUGS (2)
  1. CELEXA [Concomitant]
     Indication: DEPRESSION
  2. ANDROGEL [Suspect]
     Indication: PRODUCT USED FOR UNKNOWN INDICATION

REACTIONS (3)
  - ACCIDENTAL EXPOSURE [None]
  - HAIR TEXTURE ABNORMAL [None]
  - HYPERTRICHOSIS [None]
